FAERS Safety Report 26138766 (Version 2)
Quarter: 2025Q4

REPORT INFORMATION
  Report Type: Spontaneous
  Country: US (occurrence: US)
  Receive Date: 20251210
  Receipt Date: 20251210
  Transmission Date: 20260118
  Serious: Yes (Other)
  Sender: ROCHE
  Company Number: US-ROCHE-10000451027

PATIENT

DRUGS (1)
  1. XOLAIR [Suspect]
     Active Substance: OMALIZUMAB
     Indication: Chronic spontaneous urticaria

REACTIONS (5)
  - Bone pain [Unknown]
  - Swelling [Unknown]
  - Lymphoma [Unknown]
  - Drug ineffective [Unknown]
  - Neoplasm malignant [Unknown]
